FAERS Safety Report 7040838-8 (Version None)
Quarter: 2010Q3

REPORT INFORMATION
  Report Type: 
  Country: None (occurrence: None)
  Receive Date: 20100929
  Receipt Date: 20100602
  Transmission Date: 20110219
  Serious: No
  Sender: FDA-Public Use
  Company Number: US-WYE-H15278610

PATIENT
  Age: 50 Year
  Sex: Female
  Weight: 72.64 kg

DRUGS (8)
  1. PRISTIQ [Suspect]
     Indication: DEPRESSION
     Dosage: ^CRUSHED TABLETS AND TOOK THEM WITH APPLESAUCE^, ORAL ; 50 MG 1X PER 1 DAY, ORAL
     Route: 048
     Dates: start: 20100422, end: 20100501
  2. PRISTIQ [Suspect]
     Indication: DEPRESSION
     Dosage: ^CRUSHED TABLETS AND TOOK THEM WITH APPLESAUCE^, ORAL ; 50 MG 1X PER 1 DAY, ORAL
     Route: 048
     Dates: start: 20100520
  3. PRISTIQ [Suspect]
  4. PRISTIQ [Suspect]
  5. PROZAC [Concomitant]
  6. AMBIEN [Concomitant]
  7. XANAX [Concomitant]
  8. NEXIUM [Concomitant]

REACTIONS (6)
  - ANXIETY [None]
  - DRUG INEFFECTIVE [None]
  - MEDICATION RESIDUE [None]
  - NERVOUSNESS [None]
  - PANIC ATTACK [None]
  - WRONG TECHNIQUE IN DRUG USAGE PROCESS [None]
